FAERS Safety Report 8109078-5 (Version None)
Quarter: 2012Q1

REPORT INFORMATION
  Report Type: 
  Country: None (occurrence: None)
  Receive Date: 20120202
  Receipt Date: 20120130
  Transmission Date: 20120608
  Serious: Yes (Death, Hospitalization, Other)
  Sender: FDA-Public Use
  Company Number: BR-ABBOTT-11P-020-0725773-00

PATIENT
  Sex: Female
  Weight: 57 kg

DRUGS (2)
  1. HUMIRA [Suspect]
     Indication: RHEUMATOID ARTHRITIS
     Route: 058
     Dates: start: 20100501, end: 20100701
  2. DIAZEPAM [Concomitant]
     Indication: ANTIDEPRESSANT THERAPY
     Dates: start: 20010101, end: 20101201

REACTIONS (14)
  - HEPATITIS [None]
  - SLEEP DISORDER [None]
  - BACK PAIN [None]
  - BEDRIDDEN [None]
  - TUBERCULOSIS [None]
  - RENAL FAILURE [None]
  - FEELING ABNORMAL [None]
  - VOMITING [None]
  - OCULAR ICTERUS [None]
  - MEMORY IMPAIRMENT [None]
  - ASTHENIA [None]
  - PULMONARY OEDEMA [None]
  - PNEUMONIA [None]
  - SOMNOLENCE [None]
